FAERS Safety Report 5150179-1 (Version None)
Quarter: 2006Q4

REPORT INFORMATION
  Report Type: 
  Country: None (occurrence: None)
  Receive Date: 20061114
  Receipt Date: 20061101
  Transmission Date: 20070319
  Serious: Yes (Hospitalization)
  Sender: FDA-Public Use
  Company Number: PHBS2006JP17185

PATIENT
  Age: 65 Year
  Sex: Female

DRUGS (2)
  1. LOCHOL [Concomitant]
     Dosage: 20 MG, UNK
     Route: 048
     Dates: start: 20051027
  2. DIOVAN [Suspect]
     Indication: HYPERTENSION
     Dosage: 160 MG/DAY
     Route: 048
     Dates: start: 20051122

REACTIONS (2)
  - HEMIPLEGIA [None]
  - TRANSIENT ISCHAEMIC ATTACK [None]
